FAERS Safety Report 5076360-8 (Version None)
Quarter: 2006Q3

REPORT INFORMATION
  Report Type: 
  Country: None (occurrence: None)
  Receive Date: 20060807
  Receipt Date: 20060726
  Transmission Date: 20061208
  Serious: Yes (Other)
  Sender: FDA-Public Use
  Company Number: CHNY2006JP01813

PATIENT
  Age: 60 Year
  Sex: Male

DRUGS (1)
  1. NICOTINE [Suspect]
     Dosage: TRANSDERMAL
     Route: 062

REACTIONS (4)
  - DYSGEUSIA [None]
  - DYSPHONIA [None]
  - PHARYNGOLARYNGEAL DISCOMFORT [None]
  - SPEECH DISORDER [None]
